FAERS Safety Report 21937956 (Version 1)
Quarter: 2023Q1

REPORT INFORMATION
  Report Type: Spontaneous
  Country: CN (occurrence: CN)
  Receive Date: 20230201
  Receipt Date: 20230201
  Transmission Date: 20230417
  Serious: Yes (Other)
  Sender: FDA-Public Use
  Company Number: CN-GLAXOSMITHKLINE-CNCH2023APC004509

PATIENT

DRUGS (1)
  1. DICLOFENAC SODIUM [Suspect]
     Active Substance: DICLOFENAC SODIUM
     Indication: Arthralgia
     Dosage: 75 MG, QD
     Route: 048
     Dates: start: 20220712, end: 20220716

REACTIONS (2)
  - Upper gastrointestinal haemorrhage [Recovered/Resolved]
  - Occult blood positive [Recovered/Resolved]

NARRATIVE: CASE EVENT DATE: 20220715
